FAERS Safety Report 13596649 (Version 1)
Quarter: 2017Q2

REPORT INFORMATION
  Report Type: Spontaneous
  Country: US (occurrence: US)
  Receive Date: 20170524
  Receipt Date: 20170524
  Transmission Date: 20170830
  Serious: Yes (Hospitalization, Disabling)
  Sender: FDA-Public Use
  Company Number: None

PATIENT
  Age: 16 Year
  Sex: Female
  Weight: 104.42 kg

DRUGS (22)
  1. PROLIXIN [Suspect]
     Active Substance: FLUPHENAZINE HYDROCHLORIDE
     Indication: OPPOSITIONAL DEFIANT DISORDER
     Dosage: ?          QUANTITY:AKING?(WY):;?
  2. IRON [Concomitant]
     Active Substance: IRON
  3. PROLIXIN [Suspect]
     Active Substance: FLUPHENAZINE HYDROCHLORIDE
     Indication: AUTISM SPECTRUM DISORDER
     Dosage: ?          QUANTITY:AKING?(WY):;?
  4. HALDOL [Suspect]
     Active Substance: HALOPERIDOL
  5. GUANFACINE. [Concomitant]
     Active Substance: GUANFACINE
  6. VISTARIL [Concomitant]
     Active Substance: HYDROXYZINE PAMOATE
  7. VITAMIN D [Concomitant]
     Active Substance: CHOLECALCIFEROL
  8. LATUDA [Concomitant]
     Active Substance: LURASIDONE HYDROCHLORIDE
  9. GEODON [Concomitant]
     Active Substance: ZIPRASIDONE HYDROCHLORIDE\ZIPRASIDONE MESYLATE
  10. THORIZINE [Concomitant]
  11. TRAZODONE [Concomitant]
     Active Substance: TRAZODONE HYDROCHLORIDE
  12. LITHIUM. [Concomitant]
     Active Substance: LITHIUM
  13. STRATTERA [Concomitant]
     Active Substance: ATOMOXETINE HYDROCHLORIDE
  14. PROLIXIN [Suspect]
     Active Substance: FLUPHENAZINE HYDROCHLORIDE
     Indication: ATTENTION DEFICIT/HYPERACTIVITY DISORDER
     Dosage: ?          QUANTITY:AKING?(WY):;?
  15. CLOZARIL [Concomitant]
     Active Substance: CLOZAPINE
  16. TRILEPTAL [Concomitant]
     Active Substance: OXCARBAZEPINE
  17. TOPAMAX [Concomitant]
     Active Substance: TOPIRAMATE
  18. ZYPREXA [Suspect]
     Active Substance: OLANZAPINE
  19. ATIVAN [Suspect]
     Active Substance: LORAZEPAM
  20. DEPAKOTE [Concomitant]
     Active Substance: DIVALPROEX SODIUM
  21. RISPERDAL [Concomitant]
     Active Substance: RISPERIDONE
  22. ADDERALL [Concomitant]
     Active Substance: AMPHETAMINE ASPARTATE\AMPHETAMINE SULFATE\DEXTROAMPHETAMINE SACCHARATE\DEXTROAMPHETAMINE SULFATE

REACTIONS (1)
  - Aggression [None]

NARRATIVE: CASE EVENT DATE: 201504
